FAERS Safety Report 5779443-X (Version None)
Quarter: 2008Q2

REPORT INFORMATION
  Report Type: 
  Country: None (occurrence: None)
  Receive Date: 20080619
  Receipt Date: 20070622
  Transmission Date: 20081010
  Serious: No
  Sender: FDA-Public Use
  Company Number: US-ASTRAZENECA-2007UW15012

PATIENT
  Age: 82 Year
  Sex: Female
  Weight: 48.5 kg

DRUGS (2)
  1. ATACAND [Suspect]
     Indication: HYPERTENSION
     Route: 048
  2. ATENOLOL [Concomitant]

REACTIONS (1)
  - DYSPHONIA [None]
